FAERS Safety Report 20140610 (Version 11)
Quarter: 2024Q1

REPORT INFORMATION
  Report Type: Report from Study
  Country: CA (occurrence: CA)
  Receive Date: 20211202
  Receipt Date: 20240125
  Transmission Date: 20240410
  Serious: Yes (Other)
  Sender: FDA-Public Use
  Company Number: CA-TAKEDA-2021TUS050194

PATIENT
  Age: 60 Year
  Sex: Male

DRUGS (21)
  1. VEDOLIZUMAB [Suspect]
     Active Substance: VEDOLIZUMAB
     Indication: Crohn^s disease
     Dosage: 300 MILLIGRAM
     Route: 042
     Dates: start: 20210323
  2. VEDOLIZUMAB [Suspect]
     Active Substance: VEDOLIZUMAB
     Dosage: 300 MILLIGRAM
     Route: 042
     Dates: start: 20210818
  3. VEDOLIZUMAB [Suspect]
     Active Substance: VEDOLIZUMAB
     Dosage: 300 MILLIGRAM
     Route: 042
     Dates: start: 20210917
  4. VEDOLIZUMAB [Suspect]
     Active Substance: VEDOLIZUMAB
     Dosage: 300 MILLIGRAM, Q4WEEKS
     Route: 042
     Dates: start: 20211203
  5. VEDOLIZUMAB [Suspect]
     Active Substance: VEDOLIZUMAB
     Dosage: 300 MILLIGRAM, Q4WEEKS
     Route: 042
  6. VEDOLIZUMAB [Suspect]
     Active Substance: VEDOLIZUMAB
     Dosage: 300 MILLIGRAM, Q4WEEKS
     Route: 042
     Dates: end: 20230322
  7. VEDOLIZUMAB [Suspect]
     Active Substance: VEDOLIZUMAB
     Dosage: 300 MILLIGRAM
     Route: 042
     Dates: start: 20240103
  8. VEDOLIZUMAB [Suspect]
     Active Substance: VEDOLIZUMAB
     Dosage: 300 MILLIGRAM
     Route: 042
  9. VEDOLIZUMAB [Suspect]
     Active Substance: VEDOLIZUMAB
     Indication: Crohn^s disease
     Dosage: 108 MILLIGRAM
     Route: 058
     Dates: start: 20210630
  10. REMICADE [Concomitant]
     Active Substance: INFLIXIMAB
     Dosage: UNK
     Dates: start: 202006
  11. ELIQUIS [Concomitant]
     Active Substance: APIXABAN
     Dosage: UNK
  12. IMODIUM [Concomitant]
     Active Substance: LOPERAMIDE HYDROCHLORIDE
     Dosage: UNK
  13. IRON [Concomitant]
     Active Substance: IRON
     Dosage: UNK
     Route: 042
  14. IMURAN [Concomitant]
     Active Substance: AZATHIOPRINE
     Dosage: UNK
     Dates: start: 20190906
  15. ADALIMUMAB [Concomitant]
     Active Substance: ADALIMUMAB\ISOPROPYL ALCOHOL
     Dosage: UNK
     Dates: start: 202002
  16. STELARA [Concomitant]
     Active Substance: USTEKINUMAB
     Dosage: UNK
     Dates: end: 202006
  17. INFLIXIMAB [Concomitant]
     Active Substance: INFLIXIMAB
     Dosage: UNK
     Dates: end: 202106
  18. SKYRIZI [Concomitant]
     Active Substance: RISANKIZUMAB-RZAA
     Dosage: UNK
     Dates: start: 202304
  19. ENTOCORT [Concomitant]
     Active Substance: BUDESONIDE
     Dosage: 9 MILLIGRAM, QD
     Dates: start: 20230201
  20. ENTOCORT [Concomitant]
     Active Substance: BUDESONIDE
     Dosage: 6 MILLIGRAM
  21. URSODIOL [Concomitant]
     Active Substance: URSODIOL
     Dosage: UNK

REACTIONS (7)
  - Crohn^s disease [Unknown]
  - Drug ineffective [Not Recovered/Not Resolved]
  - Frequent bowel movements [Unknown]
  - Defaecation urgency [Not Recovered/Not Resolved]
  - Diarrhoea [Unknown]
  - Device ineffective [Unknown]
  - Off label use [Unknown]

NARRATIVE: CASE EVENT DATE: 20211203
